FAERS Safety Report 9365163 (Version 2)
Quarter: 2013Q4

REPORT INFORMATION
  Report Type: Spontaneous
  Country: GB (occurrence: GB)
  Receive Date: 20130624
  Receipt Date: 20131025
  Transmission Date: 20140711
  Serious: Yes (Life-Threatening, Hospitalization, Other)
  Sender: FDA-Public Use
  Company Number: PHHY2013GB063978

PATIENT
  Age: 52 Year
  Sex: Female
  Weight: 72 kg

DRUGS (4)
  1. METHOTREXATE [Suspect]
     Indication: PSORIASIS
     Dosage: 1 DF, QW
  2. RED CLOVER [Suspect]
     Indication: MENOPAUSAL SYMPTOMS
     Dosage: 430 MG, QD
     Route: 048
     Dates: start: 20130530, end: 20130603
  3. RED CLOVER [Suspect]
     Indication: MENOPAUSAL SYMPTOMS
  4. CITALOPRAM [Concomitant]

REACTIONS (3)
  - Vomiting [Recovered/Resolved]
  - Abdominal pain upper [Recovered/Resolved]
  - Drug interaction [Unknown]
